FAERS Safety Report 25456635 (Version 1)
Quarter: 2025Q2

REPORT INFORMATION
  Report Type: Spontaneous
  Country: US (occurrence: US)
  Receive Date: 20250619
  Receipt Date: 20250619
  Transmission Date: 20250716
  Serious: Yes (Life-Threatening, Hospitalization)
  Sender: AMGEN
  Company Number: US-AMGEN-USASP2025115732

PATIENT
  Age: 34 Year
  Sex: Male

DRUGS (2)
  1. PREDNISONE [Suspect]
     Active Substance: PREDNISONE
     Indication: Vasculitis
     Route: 065
  2. RITUXIMAB [Suspect]
     Active Substance: RITUXIMAB
     Indication: Granulomatosis with polyangiitis
     Route: 065

REACTIONS (12)
  - Pneumonitis [Unknown]
  - Legionella test positive [Unknown]
  - Antineutrophil cytoplasmic antibody positive [Unknown]
  - Haemoptysis [Unknown]
  - Respiratory failure [Unknown]
  - Pulmonary alveolar haemorrhage [Unknown]
  - Excessive granulation tissue [Unknown]
  - Deep vein thrombosis [Unknown]
  - Hypoxia [Unknown]
  - Acute respiratory distress syndrome [Unknown]
  - Acute kidney injury [Unknown]
  - Glomerulonephritis rapidly progressive [Unknown]
